FAERS Safety Report 7053400-8 (Version None)
Quarter: 2010Q4

REPORT INFORMATION
  Report Type: 
  Country: None (occurrence: None)
  Receive Date: 20101020
  Receipt Date: 20101005
  Transmission Date: 20110411
  Serious: Yes (Hospitalization)
  Sender: FDA-Public Use
  Company Number: PHHO2010JP15226

PATIENT
  Sex: Female
  Weight: 52 kg

DRUGS (5)
  1. BLINDED FTY 720 FTY+CAP+MSC [Suspect]
     Indication: MULTIPLE SCLEROSIS
     Dosage: CODE NOT BROKEN
     Route: 048
     Dates: start: 20080512, end: 20101004
  2. BLINDED NO TREATMENT RECEIVED NOMED [Suspect]
     Indication: MULTIPLE SCLEROSIS
     Dosage: CODE NOT BROKEN
     Route: 048
     Dates: start: 20080512, end: 20101004
  3. ALOSENN [Concomitant]
  4. LENDORMIN [Concomitant]
  5. AMITRIPTYLINE HCL [Concomitant]

REACTIONS (3)
  - BREAST CANCER [None]
  - BREAST DISCOMFORT [None]
  - BREAST PAIN [None]
